FAERS Safety Report 24776451 (Version 1)
Quarter: 2024Q4

REPORT INFORMATION
  Report Type: Spontaneous
  Country: CN (occurrence: CN)
  Receive Date: 20241226
  Receipt Date: 20241226
  Transmission Date: 20250115
  Serious: Yes (Hospitalization, Other)
  Sender: Kenvue
  Company Number: CN-KENVUE-20241206067

PATIENT

DRUGS (1)
  1. CHILDRENS MOTRIN [Suspect]
     Active Substance: IBUPROFEN
     Indication: Noninfective gingivitis
     Dosage: 0.3 GRAM, TWICE A DAY
     Route: 048
     Dates: start: 20241104, end: 20241109

REACTIONS (7)
  - Product administered to patient of inappropriate age [Unknown]
  - Chronic gastritis [Unknown]
  - Eating disorder symptom [Unknown]
  - Oesophagitis [Unknown]
  - Fungal oesophagitis [Unknown]
  - Gastritis erosive [Unknown]
  - Gastrointestinal haemorrhage [Recovered/Resolved]

NARRATIVE: CASE EVENT DATE: 20241104
